FAERS Safety Report 5467838-3 (Version None)
Quarter: 2007Q3

REPORT INFORMATION
  Report Type: 
  Country: None (occurrence: None)
  Receive Date: 20070820
  Receipt Date: 20070717
  Transmission Date: 20080115
  Serious: No
  Sender: FDA-Public Use
  Company Number: WAES 0707USA02986

PATIENT
  Age: 81 Year
  Sex: Male

DRUGS (11)
  1. JANUVIA [Suspect]
     Indication: TYPE 2 DIABETES MELLITUS
     Dosage: 100 MG/DAILY/PO
     Route: 048
     Dates: start: 20070618, end: 20070701
  2. AVODART [Concomitant]
  3. COUMADIN [Concomitant]
  4. DIOVAN [Concomitant]
  5. FLOMAZ (TAMSULOSIN HYDROCHLORIDE) [Concomitant]
  6. GLUCOTROL [Concomitant]
  7. LANOXIN [Concomitant]
  8. LIPITOR [Concomitant]
  9. NEXUM [Concomitant]
  10. TOPROL-XL [Concomitant]
  11. ZETIA [Concomitant]

REACTIONS (3)
  - BLOOD PRESSURE INADEQUATELY CONTROLLED [None]
  - OEDEMA PERIPHERAL [None]
  - WEIGHT INCREASED [None]
